FAERS Safety Report 6551782-4 (Version None)
Quarter: 2010Q1

REPORT INFORMATION
  Report Type: 
  Country: None (occurrence: None)
  Receive Date: 20100126
  Receipt Date: 20100118
  Transmission Date: 20100710
  Serious: Yes (Hospitalization)
  Sender: FDA-Public Use
  Company Number: IT-ASTRAZENECA-2010SE02478

PATIENT
  Age: 15837 Day
  Sex: Female

DRUGS (6)
  1. CRESTOR [Suspect]
     Indication: HYPERCHOLESTEROLAEMIA
     Route: 048
     Dates: start: 20091126, end: 20091130
  2. PLAQUENIL [Suspect]
     Indication: SYSTEMIC LUPUS ERYTHEMATOSUS
     Route: 048
     Dates: start: 20091126, end: 20091130
  3. OMEPRAZOLE [Concomitant]
     Route: 048
  4. EUTIROX [Concomitant]
     Indication: AUTOIMMUNE THYROIDITIS
     Route: 048
  5. COUMADIN [Concomitant]
     Route: 048
  6. DEFLAN [Concomitant]
     Route: 048

REACTIONS (1)
  - STEVENS-JOHNSON SYNDROME [None]
